FAERS Safety Report 18786222 (Version 1)
Quarter: 2021Q1

REPORT INFORMATION
  Report Type: Report from Study
  Country: MX (occurrence: MX)
  Receive Date: 20210126
  Receipt Date: 20210126
  Transmission Date: 20210419
  Serious: Yes (Other)
  Sender: FDA-Public Use
  Company Number: NVSC2021MX012768

PATIENT
  Sex: Female
  Weight: 70 kg

DRUGS (2)
  1. TEGRETOL [Suspect]
     Active Substance: CARBAMAZEPINE
     Indication: EPILEPSY
     Dosage: 1 DF, BID (200 MG)
     Route: 048
     Dates: start: 2008
  2. TEGRETOL [Suspect]
     Active Substance: CARBAMAZEPINE
     Indication: EPILEPSY
     Dosage: 2 DF (200 MG), TID
     Route: 048
     Dates: start: 2011

REACTIONS (6)
  - Craniocerebral injury [Unknown]
  - Hypoaesthesia [Unknown]
  - Emotional disorder [Unknown]
  - Seizure [Unknown]
  - Product availability issue [Unknown]
  - Extra dose administered [Unknown]
